FAERS Safety Report 14304873 (Version 1)
Quarter: 2017Q4

REPORT INFORMATION
  Report Type: Spontaneous
  Country: GB (occurrence: GB)
  Receive Date: 20171219
  Receipt Date: 20171219
  Transmission Date: 20180321
  Serious: Yes (Other)
  Sender: FDA-Public Use
  Company Number: GB-OTSUKA-DJ201309509

PATIENT
  Age: 39 Year
  Sex: Female

DRUGS (2)
  1. ABILIFY [Suspect]
     Active Substance: ARIPIPRAZOLE
     Indication: PSYCHOTIC DISORDER
     Dosage: 10 MG, UNK
     Route: 048
     Dates: start: 20131029, end: 20131121
  2. HALOPERIDOL. [Concomitant]
     Active Substance: HALOPERIDOL
     Indication: PRODUCT USED FOR UNKNOWN INDICATION
     Dosage: 1.5 MG, UNK
     Route: 065

REACTIONS (8)
  - Alanine aminotransferase increased [Not Recovered/Not Resolved]
  - Blood electrolytes abnormal [Not Recovered/Not Resolved]
  - Nausea [Unknown]
  - Glomerular filtration rate decreased [Not Recovered/Not Resolved]
  - Blood creatine increased [Not Recovered/Not Resolved]
  - Off label use [Unknown]
  - Liver function test abnormal [Not Recovered/Not Resolved]
  - Diarrhoea [Recovered/Resolved]

NARRATIVE: CASE EVENT DATE: 20131030
